FAERS Safety Report 10178904 (Version 1)
Quarter: 2014Q2

REPORT INFORMATION
  Report Type: Spontaneous
  Country: US (occurrence: US)
  Receive Date: 20140519
  Receipt Date: 20140519
  Transmission Date: 20141212
  Serious: No
  Sender: FDA-Public Use
  Company Number: US-BIOGENIDEC-2014BI040539

PATIENT
  Age: 33 Year
  Sex: Female

DRUGS (1)
  1. TECFIDERA [Suspect]
     Indication: MULTIPLE SCLEROSIS
     Route: 048
     Dates: start: 20140409

REACTIONS (8)
  - Blood pressure increased [Unknown]
  - Drug intolerance [Unknown]
  - Pain [Unknown]
  - Feeling abnormal [Unknown]
  - Intentional underdose [Not Recovered/Not Resolved]
  - Gastrointestinal pain [Recovered/Resolved]
  - Nausea [Recovered/Resolved]
  - Flushing [Recovered/Resolved]
